FAERS Safety Report 6752447-6 (Version None)
Quarter: 2010Q2

REPORT INFORMATION
  Report Type: 
  Country: None (occurrence: None)
  Receive Date: 20100602
  Receipt Date: 20100525
  Transmission Date: 20101027
  Serious: Yes (Life-Threatening)
  Sender: FDA-Public Use
  Company Number: CH-CEPHALON-2010003008

PATIENT
  Sex: Female
  Weight: 69 kg

DRUGS (2)
  1. TREANDA [Suspect]
     Indication: CHRONIC LYMPHOCYTIC LEUKAEMIA
     Route: 041
     Dates: start: 20100303, end: 20100304
  2. ALLOPUR [Suspect]
     Route: 048
     Dates: start: 20100303, end: 20100316

REACTIONS (6)
  - CHILLS [None]
  - COOMBS POSITIVE HAEMOLYTIC ANAEMIA [None]
  - NAUSEA [None]
  - PYREXIA [None]
  - THROMBOCYTOPENIA [None]
  - VOMITING [None]
